FAERS Safety Report 9372650 (Version 1)
Quarter: 2013Q2

REPORT INFORMATION
  Report Type: Report from Study
  Country: US (occurrence: US)
  Receive Date: 20130627
  Receipt Date: 20130627
  Transmission Date: 20140414
  Serious: Yes (Other)
  Sender: FDA-Public Use
  Company Number: US-MYLANLABS-2013S1004303

PATIENT
  Age: 32 Year
  Sex: Male

DRUGS (8)
  1. CLOZAPINE TABLETS [Suspect]
     Indication: SCHIZOAFFECTIVE DISORDER
     Route: 048
     Dates: start: 20120721, end: 20130220
  2. DEPAKOTE [Concomitant]
     Route: 030
  3. PROPRANOLOL [Concomitant]
     Route: 048
  4. DIVALPROEX [Concomitant]
  5. VITAMIN D [Concomitant]
  6. DOCUSATE SODIUM [Concomitant]
  7. IBUPROFEN [Concomitant]
  8. SYNTHROID [Concomitant]
     Indication: HYPOTHYROIDISM

REACTIONS (1)
  - Granulocytopenia [Not Recovered/Not Resolved]
